FAERS Safety Report 5723907-1 (Version None)
Quarter: 2008Q2

REPORT INFORMATION
  Report Type: 
  Country: None (occurrence: None)
  Receive Date: 20080430
  Receipt Date: 20080422
  Transmission Date: 20081010
  Serious: Yes (Other)
  Sender: FDA-Public Use
  Company Number: JP-BRISTOL-MYERS SQUIBB COMPANY-14149223

PATIENT
  Age: 45 Year
  Sex: Female
  Weight: 56 kg

DRUGS (7)
  1. ABILIFY [Suspect]
     Indication: SCHIZOPHRENIA
     Dosage: (3MG)28AUG07-29JAN08;DOSE INCREASED TO 18MG/D-30JAN08;REDUCED TO 12MG/D-14FEB08
     Route: 048
     Dates: start: 20070828, end: 20080319
  2. LEXOTAN [Concomitant]
     Route: 048
     Dates: start: 20070502
  3. SENNOSIDE [Concomitant]
     Route: 048
  4. SELBEX [Concomitant]
     Route: 048
     Dates: start: 20080130
  5. ALDIOXA [Concomitant]
     Route: 048
     Dates: end: 20080129
  6. ZYPREXA [Concomitant]
     Route: 048
  7. BROTIZOLAM [Concomitant]
     Route: 048

REACTIONS (2)
  - HALLUCINATION, AUDITORY [None]
  - PERSECUTORY DELUSION [None]
